FAERS Safety Report 20011055 (Version 2)
Quarter: 2023Q2

REPORT INFORMATION
  Report Type: Spontaneous
  Country: GB (occurrence: GB)
  Receive Date: 20211028
  Receipt Date: 20230620
  Transmission Date: 20230721
  Serious: Yes (Life-Threatening, Hospitalization, Disabling, Congenital Anomaly, Other)
  Sender: FDA-Public Use
  Company Number: None

PATIENT
  Age: 32 Year
  Sex: Female
  Weight: 57.15 kg

DRUGS (2)
  1. CITALOPRAM [Suspect]
     Active Substance: CITALOPRAM HYDROBROMIDE
     Indication: Anxiety
     Dosage: 1-10MG
     Route: 048
     Dates: start: 20010202
  2. CITALOPRAM [Suspect]
     Active Substance: CITALOPRAM HYDROBROMIDE
     Indication: Anxiety
     Route: 065

REACTIONS (15)
  - Sciatica [Not Recovered/Not Resolved]
  - Intrusive thoughts [Not Recovered/Not Resolved]
  - Brain fog [Not Recovered/Not Resolved]
  - Pregnancy [Unknown]
  - Breast feeding [Unknown]
  - Suicidal ideation [Not Recovered/Not Resolved]
  - Fatigue [Not Recovered/Not Resolved]
  - Insomnia [Not Recovered/Not Resolved]
  - Withdrawal syndrome [Not Recovered/Not Resolved]
  - Persistent genital arousal disorder [Unknown]
  - Akathisia [Unknown]
  - Histamine intolerance [Unknown]
  - Weight decreased [Unknown]
  - Suicide attempt [Unknown]
  - Sensory processing disorder [Unknown]

NARRATIVE: CASE EVENT DATE: 20010202
